FAERS Safety Report 6617370-6 (Version None)
Quarter: 2010Q1

REPORT INFORMATION
  Report Type: 
  Country: None (occurrence: None)
  Receive Date: 20100307
  Receipt Date: 20100301
  Transmission Date: 20100710
  Serious: Yes (Other)
  Sender: FDA-Public Use
  Company Number: US-BAYER-201012408BCC

PATIENT
  Age: 85 Year
  Sex: Female

DRUGS (2)
  1. ALEVE (CAPLET) [Suspect]
     Indication: DRUG USE FOR UNKNOWN INDICATION
     Dosage: TOTAL DAILY DOSE: 440 MG  UNIT DOSE: 220 MG
     Route: 048
  2. TYLENOL-500 [Concomitant]
     Dosage: AS USED: 2 DF  UNIT DOSE: 1 DF
     Route: 048

REACTIONS (2)
  - RENAL DISORDER [None]
  - URINARY TRACT INFECTION [None]
